FAERS Safety Report 4389209-3 (Version None)
Quarter: 2004Q2

REPORT INFORMATION
  Report Type: 
  Country: None (occurrence: None)
  Receive Date: 20040630
  Receipt Date: 20040616
  Transmission Date: 20050107
  Serious: Yes (Hospitalization, Other)
  Sender: FDA-Public Use
  Company Number: 2004040849

PATIENT
  Age: 51 Year
  Sex: Male

DRUGS (2)
  1. FELDENE [Suspect]
     Indication: NEURALGIA
     Dosage: INTRAMUSCULAR
     Route: 030
     Dates: start: 19991217, end: 19991224
  2. THIOCOLCHICOSIDE (THIOCOLCHICOSIDE) [Concomitant]

REACTIONS (7)
  - BLOOD PRESSURE DECREASED [None]
  - DUODENAL ULCER [None]
  - HAEMATEMESIS [None]
  - HAEMOGLOBIN DECREASED [None]
  - HEART RATE INCREASED [None]
  - HELICOBACTER INFECTION [None]
  - MALAISE [None]
